FAERS Safety Report 7637312-4 (Version None)
Quarter: 2011Q3

REPORT INFORMATION
  Report Type: 
  Country: None (occurrence: None)
  Receive Date: 20110726
  Receipt Date: 20110713
  Transmission Date: 20111222
  Serious: Yes (Disabling, Other)
  Sender: FDA-Public Use
  Company Number: US-ELI_LILLY_AND_COMPANY-US201008001508

PATIENT
  Sex: Female
  Weight: 54.875 kg

DRUGS (17)
  1. FORTEO [Suspect]
     Dosage: 20 UG, DAILY (1/D)
     Route: 065
  2. OXYCODONE HCL [Concomitant]
     Dosage: UNK, UNKNOWN
  3. XANAX [Concomitant]
     Dosage: UNK, UNKNOWN
  4. ASCORBIC ACID [Concomitant]
     Dosage: UNK, UNKNOWN
  5. IMITREX [Concomitant]
  6. TOPAMAX [Concomitant]
  7. FORTEO [Suspect]
     Indication: OSTEOPOROSIS
     Dosage: 20 UG, DAILY (1/D)
     Route: 065
  8. FORTEO [Suspect]
     Dosage: 20 UG, QD
     Route: 065
  9. OPANA [Concomitant]
  10. CIPROFLOXACIN HCL [Concomitant]
  11. VITAMIN D [Concomitant]
  12. ZOLOFT [Concomitant]
     Dosage: UNK, UNKNOWN
  13. SERTRALINE HYDROCHLORIDE [Concomitant]
  14. AMBIEN [Concomitant]
     Dosage: UNK, UNKNOWN
  15. FORTEO [Suspect]
     Dosage: 20 UG, DAILY (1/D)
     Route: 065
  16. PRILOSEC [Concomitant]
     Dosage: UNK, UNKNOWN
  17. SOMA [Concomitant]
     Dosage: UNK, UNKNOWN

REACTIONS (29)
  - AMNESIA [None]
  - MALAISE [None]
  - LOSS OF CONSCIOUSNESS [None]
  - MOVEMENT DISORDER [None]
  - CLOSTRIDIAL INFECTION [None]
  - RED BLOOD CELL COUNT INCREASED [None]
  - HEPATIC STEATOSIS [None]
  - EATING DISORDER [None]
  - DIZZINESS [None]
  - SURGERY [None]
  - SPINAL FRACTURE [None]
  - FALL [None]
  - SPLENOMEGALY [None]
  - PYREXIA [None]
  - FOOD CRAVING [None]
  - DRUG DOSE OMISSION [None]
  - DISABILITY [None]
  - OEDEMA PERIPHERAL [None]
  - NAUSEA [None]
  - DYSSTASIA [None]
  - PAIN [None]
  - ASTHENIA [None]
  - MEDICATION ERROR [None]
  - GAIT DISTURBANCE [None]
  - VISUAL ACUITY REDUCED [None]
  - APPETITE DISORDER [None]
  - INSOMNIA [None]
  - INJECTION SITE HAEMATOMA [None]
  - BACK PAIN [None]
